FAERS Safety Report 24372865 (Version 1)
Quarter: 2024Q3

REPORT INFORMATION
  Report Type: Spontaneous
  Country: EG (occurrence: EG)
  Receive Date: 20240927
  Receipt Date: 20240927
  Transmission Date: 20241016
  Serious: Yes (Life-Threatening, Hospitalization, Other)
  Sender: SANOFI AVENTIS
  Company Number: EG-SA-2024SA278479

PATIENT
  Age: 80 Year
  Sex: Female

DRUGS (7)
  1. AMARYL [Suspect]
     Active Substance: GLIMEPIRIDE
     Indication: Diabetes mellitus
     Dosage: 2 MG, QD
     Route: 048
     Dates: end: 2024
  2. PANTOPRAZOLE [Concomitant]
     Active Substance: PANTOPRAZOLE
     Dosage: 40 MG
     Route: 048
  3. LEZBERG [Concomitant]
     Dosage: 5/20 MG TABLET ONCE DAILY AS ORALLY
     Route: 048
  4. ICANDRA PLUS [Concomitant]
     Dosage: 50/1000 MG TABLET ONCE DAILY AS ORALLY
     Route: 048
  5. AGGREX [Concomitant]
     Dosage: 75 MG, QD
     Route: 048
  6. NEUROVIT [Concomitant]
     Dosage: UNK UNK, BID
     Route: 048
  7. PLAVICARD [Concomitant]
     Dosage: UNK
     Route: 048

REACTIONS (2)
  - Altered state of consciousness [Recovered/Resolved]
  - Hypoglycaemia [Recovered/Resolved]

NARRATIVE: CASE EVENT DATE: 20240828
